FAERS Safety Report 20773394 (Version 2)
Quarter: 2022Q4

REPORT INFORMATION
  Report Type: Spontaneous
  Country: US (occurrence: US)
  Receive Date: 20220502
  Receipt Date: 20221021
  Transmission Date: 20230113
  Serious: No
  Sender: FDA-Public Use
  Company Number: US-Calliditas-2022CAL00054

PATIENT
  Age: 35 Year
  Sex: Female

DRUGS (7)
  1. TARPEYO [Suspect]
     Active Substance: BUDESONIDE
     Indication: IgA nephropathy
     Dosage: 16 MG ONCE DAILY
     Route: 050
     Dates: start: 20220325
  2. CLONIDINE [Concomitant]
     Active Substance: CLONIDINE
     Indication: Irritable bowel syndrome
     Dosage: 1 MG EVERY NIGHT
  3. LATUDA [Concomitant]
     Active Substance: LURASIDONE HYDROCHLORIDE
  4. BUPROPION HYDROCHLORIDE [Concomitant]
     Active Substance: BUPROPION HYDROCHLORIDE
  5. FUROSEMIDE [Concomitant]
     Active Substance: FUROSEMIDE
  6. ESTROGENS [Concomitant]
     Active Substance: ESTROGENS
  7. OXYBUTYN [Concomitant]

REACTIONS (3)
  - Product residue present [Unknown]
  - Diarrhoea [Unknown]
  - Bladder discomfort [Unknown]

NARRATIVE: CASE EVENT DATE: 20220501
